FAERS Safety Report 19415286 (Version 1)
Quarter: 2021Q2

REPORT INFORMATION
  Report Type: Spontaneous
  Country: BE (occurrence: BE)
  Receive Date: 20210615
  Receipt Date: 20210615
  Transmission Date: 20210717
  Serious: Yes (Other)
  Sender: FDA-Public Use
  Company Number: BE-MACLEODS PHARMACEUTICALS US LTD-MAC2021031477

PATIENT

DRUGS (3)
  1. ACYCLOVIR. [Suspect]
     Active Substance: ACYCLOVIR
     Indication: DISSEMINATED VARICELLA ZOSTER VIRUS INFECTION
     Dosage: 10 MILLIGRAM/KILOGRAM, TID, TOTAL DAILY DOSE, 1500 MG
     Route: 051
  2. PREDNISONE. [Concomitant]
     Active Substance: PREDNISONE
     Indication: IMMUNOSUPPRESSANT DRUG THERAPY
     Dosage: UNK, 40 MG/DL
     Route: 065
  3. CYCLOPHOSPHAMIDE. [Concomitant]
     Active Substance: CYCLOPHOSPHAMIDE
     Indication: IMMUNOSUPPRESSANT DRUG THERAPY
     Dosage: UNK, 100 MG/DL
     Route: 065

REACTIONS (7)
  - Disorientation [Recovered/Resolved]
  - Confusional state [Recovered/Resolved]
  - Agitation [Recovered/Resolved]
  - Hyperhidrosis [Unknown]
  - Neurotoxicity [Recovered/Resolved]
  - Hemiparaesthesia [Recovered/Resolved]
  - Vision blurred [Unknown]
